FAERS Safety Report 7942140-6 (Version None)
Quarter: 2011Q4

REPORT INFORMATION
  Report Type: 
  Country: None (occurrence: None)
  Receive Date: 20111122
  Receipt Date: 20111110
  Transmission Date: 20120403
  Serious: Yes (Other)
  Sender: FDA-Public Use
  Company Number: TCI2011A05684

PATIENT

DRUGS (7)
  1. LIPITOR [Concomitant]
  2. TOWAMIN (ATENOLOL) [Concomitant]
  3. ASPIRIN [Concomitant]
  4. SIMVASTATIN [Concomitant]
  5. ACTOS [Suspect]
     Indication: DIABETES MELLITUS
     Dosage: 15 MG (15 MG, 1 IN 1 D) PER ORAL
     Route: 048
     Dates: start: 20020701
  6. MICARDIS [Suspect]
     Indication: HYPERTENSION
     Dosage: 20 MG (20 MG, 1 IN 1 D) 1) PER ORAL
     Route: 048
     Dates: start: 20050701, end: 20111024
  7. AMARYL [Concomitant]

REACTIONS (10)
  - INTERSTITIAL LUNG DISEASE [None]
  - RALES [None]
  - CHEST PAIN [None]
  - EOSINOPHIL COUNT INCREASED [None]
  - ORGANISING PNEUMONIA [None]
  - CAROTID ARTERY STENOSIS [None]
  - LEFT VENTRICULAR HYPERTROPHY [None]
  - CHEST X-RAY ABNORMAL [None]
  - COUGH [None]
  - THYROID NEOPLASM [None]
